FAERS Safety Report 23938822 (Version 1)
Quarter: 2024Q2

REPORT INFORMATION
  Report Type: Spontaneous
  Country: FR (occurrence: FR)
  Receive Date: 20240604
  Receipt Date: 20240604
  Transmission Date: 20240716
  Serious: Yes (Death, Other)
  Sender: FDA-Public Use
  Company Number: None

PATIENT
  Age: 70 Year
  Sex: Female

DRUGS (1)
  1. SOLIRIS [Suspect]
     Active Substance: ECULIZUMAB
     Indication: Thrombotic microangiopathy
     Dosage: 900 MILLIGRAM, QW
     Route: 042
     Dates: start: 20240313, end: 20240327

REACTIONS (4)
  - Pneumocystis jirovecii pneumonia [Fatal]
  - Pneumonia klebsiella [Fatal]
  - Bronchopulmonary aspergillosis [Fatal]
  - Off label use [Unknown]

NARRATIVE: CASE EVENT DATE: 20240402
